FAERS Safety Report 5498214-5 (Version None)
Quarter: 2007Q4

REPORT INFORMATION
  Report Type: 
  Country: None (occurrence: None)
  Receive Date: 20071025
  Receipt Date: 20070412
  Transmission Date: 20080405
  Serious: No
  Sender: FDA-Public Use
  Company Number: A0647018A

PATIENT
  Age: 50 Year
  Sex: Female

DRUGS (5)
  1. ADVAIR DISKUS 100/50 [Suspect]
     Indication: ASTHMA
     Route: 055
     Dates: start: 20040101
  2. CELEXA [Concomitant]
  3. VICODIN [Concomitant]
  4. SIMVASTATIN [Concomitant]
  5. ALBUTEROL [Concomitant]

REACTIONS (2)
  - BONE DISORDER [None]
  - PERIODONTAL DISEASE [None]
